FAERS Safety Report 17793893 (Version 3)
Quarter: 2020Q3

REPORT INFORMATION
  Report Type: Spontaneous
  Country: DE (occurrence: DE)
  Receive Date: 20200515
  Receipt Date: 20200716
  Transmission Date: 20201102
  Serious: Yes (Other)
  Sender: FDA-Public Use
  Company Number: NVSC2020DE130684

PATIENT
  Age: 43 Year
  Sex: Female
  Weight: 136 kg

DRUGS (3)
  1. L?THYROXINE [Concomitant]
     Active Substance: LEVOTHYROXINE
     Indication: HYPOTHYROIDISM
     Dosage: 100 UG, QD (2?0?0?0)
     Route: 048
  2. CIPROHEXAL [CIPROFLOXACIN HYDROCHLORIDE] [Suspect]
     Active Substance: CIPROFLOXACIN HYDROCHLORIDE
     Indication: CYSTITIS NONINFECTIVE
     Dosage: UNK, BID (1?0?1)
     Route: 048
  3. CIPROHEXAL [CIPROFLOXACIN HYDROCHLORIDE] [Suspect]
     Active Substance: CIPROFLOXACIN HYDROCHLORIDE
     Indication: URINARY TRACT INFECTION
     Dosage: 2 DF, QD
     Route: 048

REACTIONS (4)
  - Skin burning sensation [Recovered/Resolved]
  - Acute polyneuropathy [Recovered/Resolved]
  - Muscle twitching [Recovered/Resolved]
  - Paraesthesia [Recovered/Resolved]

NARRATIVE: CASE EVENT DATE: 202001
